FAERS Safety Report 20937616 (Version 1)
Quarter: 2022Q2

REPORT INFORMATION
  Report Type: Spontaneous
  Country: US (occurrence: None)
  Receive Date: 20220608
  Receipt Date: 20220608
  Transmission Date: 20220721
  Serious: No
  Sender: FDA-Public Use
  Company Number: None

PATIENT
  Sex: Female

DRUGS (13)
  1. AMBRISENTAN [Suspect]
     Active Substance: AMBRISENTAN
     Indication: Essential hypertension
     Dosage: FREQUENCY : DAILY;?
     Route: 048
  2. LETAIRIS [Concomitant]
     Active Substance: AMBRISENTAN
  3. CILOSTAZOL [Concomitant]
     Active Substance: CILOSTAZOL
  4. PREDNISONE [Concomitant]
     Active Substance: PREDNISONE
  5. COLCRYS [Concomitant]
     Active Substance: COLCHICINE
  6. ADEMPAS [Concomitant]
     Active Substance: RIOCIGUAT
  7. LEVOCETIRIZINE DIHYDROCHL [Concomitant]
  8. FUROSEMIDE [Concomitant]
     Active Substance: FUROSEMIDE
  9. LOVASTATIN [Concomitant]
     Active Substance: LOVASTATIN
  10. VALSARTAN/HYDROCHLOROTHIA [Concomitant]
  11. TYLENOL EXTRA STRENGTH [Concomitant]
     Active Substance: ACETAMINOPHEN
  12. LEVOTHYROXINE SODIUM [Concomitant]
     Active Substance: LEVOTHYROXINE SODIUM
  13. TRAMADOL HCL [Concomitant]
     Active Substance: TRAMADOL HYDROCHLORIDE

REACTIONS (3)
  - Chest discomfort [None]
  - Oedema peripheral [None]
  - Dyspnoea exertional [None]
